FAERS Safety Report 24681271 (Version 1)
Quarter: 2024Q4

REPORT INFORMATION
  Report Type: Spontaneous
  Country: US (occurrence: US)
  Receive Date: 20241129
  Receipt Date: 20241129
  Transmission Date: 20250114
  Serious: No
  Sender: PFIZER
  Company Number: US-BRISTOL-MYERS SQUIBB COMPANY-2024-183671

PATIENT
  Age: 71 Year
  Sex: Female

DRUGS (2)
  1. TUKYSA [Interacting]
     Active Substance: TUCATINIB
     Dosage: 1 TABLET TWICE DAILY
  2. ELIQUIS [Interacting]
     Active Substance: APIXABAN
     Dosage: UNK
     Dates: start: 202411

REACTIONS (1)
  - Drug interaction [Unknown]
